FAERS Safety Report 5599530-9 (Version None)
Quarter: 2008Q1

REPORT INFORMATION
  Report Type: 
  Country: None (occurrence: None)
  Receive Date: 20080123
  Receipt Date: 20080114
  Transmission Date: 20080703
  Serious: Yes (Death, Hospitalization, Disabling)
  Sender: FDA-Public Use
  Company Number: US-JNJFOC-20071200590

PATIENT
  Sex: Female
  Weight: 92.99 kg

DRUGS (15)
  1. ORTHO EVRA [Suspect]
     Route: 062
  2. ORTHO EVRA [Suspect]
     Indication: DRUG USE FOR UNKNOWN INDICATION
     Route: 062
  3. HYDROCORTISONE [Concomitant]
     Indication: HYPOPITUITARISM
  4. SYNTHROID [Concomitant]
     Indication: HYPOPITUITARISM
  5. FLORICEF [Concomitant]
     Indication: HYPOPITUITARISM
  6. IRON [Concomitant]
     Indication: ANAEMIA
  7. URO K [Concomitant]
  8. MAGNESIUM OXIDE [Concomitant]
  9. POTASSIUM PHOSPHATES [Concomitant]
  10. PREVACID [Concomitant]
  11. DDAVP (NEEDS NO REFRIGERATION) [Concomitant]
     Indication: DIABETES INSIPIDUS
  12. OXYGEN [Concomitant]
  13. VIAGRA [Concomitant]
  14. TRACLEER [Concomitant]
  15. CALCIUM CITRATE WITH VITAMIN D [Concomitant]

REACTIONS (4)
  - PULMONARY EMBOLISM [None]
  - PULMONARY HYPERTENSION [None]
  - RIGHT VENTRICULAR FAILURE [None]
  - SEPSIS [None]
